FAERS Safety Report 14519333 (Version 2)
Quarter: 2018Q2

REPORT INFORMATION
  Report Type: Spontaneous
  Country: NZ (occurrence: NZ)
  Receive Date: 20180212
  Receipt Date: 20180514
  Transmission Date: 20180711
  Serious: Yes (Other)
  Sender: FDA-Public Use
  Company Number: NZ-ELI_LILLY_AND_COMPANY-AU201802003883

PATIENT
  Age: 41 Year
  Sex: Female

DRUGS (5)
  1. ZOPICLONE [Concomitant]
     Active Substance: ZOPICLONE
     Dosage: 15 MG, UNKNOWN
     Route: 048
  2. DILTIAZEM. [Concomitant]
     Active Substance: DILTIAZEM
     Dosage: 180 MG, UNKNOWN
     Route: 048
  3. CLONAZEPAM. [Concomitant]
     Active Substance: CLONAZEPAM
     Dosage: UNK, UNKNOWN
     Route: 048
  4. OLANZAPINE PAMOATE [Suspect]
     Active Substance: OLANZAPINE PAMOATE
     Indication: SEASONAL AFFECTIVE DISORDER
     Dosage: 300 MG, EVERY TWO WEEKS
     Route: 030
     Dates: start: 20160611
  5. OLANZAPINE PAMOATE [Suspect]
     Active Substance: OLANZAPINE PAMOATE
     Indication: BIPOLAR DISORDER

REACTIONS (7)
  - Eyelid ptosis [Recovered/Resolved]
  - Gait disturbance [Recovered/Resolved]
  - Post-injection delirium sedation syndrome [Recovered/Resolved]
  - Off label use [Unknown]
  - Dysarthria [Recovered/Resolved]
  - Somnolence [Recovered/Resolved]
  - Sedation [Recovered/Resolved]

NARRATIVE: CASE EVENT DATE: 20180130
